FAERS Safety Report 8579631-3 (Version None)
Quarter: 2012Q3

REPORT INFORMATION
  Report Type: 
  Country: None (occurrence: None)
  Receive Date: 20120808
  Receipt Date: 20120731
  Transmission Date: 20120928
  Serious: Yes (Other)
  Sender: FDA-Public Use
  Company Number: JP-VERTEX PHARMACEUTICALS INC.-AE-2012-011489

PATIENT
  Age: 60 Year
  Sex: Male

DRUGS (3)
  1. PEG-INTRON [Concomitant]
     Route: 058
     Dates: start: 20120619, end: 20120730
  2. INCIVEK [Suspect]
     Indication: HEPATITIS C
     Route: 048
     Dates: start: 20120619, end: 20120730
  3. REBETOL [Concomitant]
     Route: 048
     Dates: start: 20120619, end: 20120730

REACTIONS (1)
  - RASH [None]
